FAERS Safety Report 23736692 (Version 2)
Quarter: 2024Q2

REPORT INFORMATION
  Report Type: Spontaneous
  Country: US (occurrence: US)
  Receive Date: 20240412
  Receipt Date: 20240602
  Transmission Date: 20240715
  Serious: No
  Sender: FDA-Public Use
  Company Number: US-AstraZeneca-CH-00602342A

PATIENT
  Sex: Male

DRUGS (1)
  1. ULTOMIRIS [Suspect]
     Active Substance: RAVULIZUMAB-CWVZ
     Indication: Paroxysmal nocturnal haemoglobinuria
     Dosage: UNK
     Route: 042

REACTIONS (6)
  - Arthralgia [Unknown]
  - Malaise [Unknown]
  - Pain [Unknown]
  - Headache [Unknown]
  - Back pain [Unknown]
  - Pain in extremity [Unknown]
